FAERS Safety Report 8456205-6 (Version None)
Quarter: 2012Q2

REPORT INFORMATION
  Report Type: 
  Country: None (occurrence: None)
  Receive Date: 20120621
  Receipt Date: 20120618
  Transmission Date: 20120825
  Serious: Yes (Other)
  Sender: FDA-Public Use
  Company Number: US-PFIZER INC-2012146995

PATIENT
  Sex: Female
  Weight: 61.224 kg

DRUGS (1)
  1. PRISTIQ [Suspect]
     Indication: DEPRESSION
     Dosage: 50 MG, 1X/DAY
     Route: 048
     Dates: start: 20100101, end: 20120501

REACTIONS (7)
  - WITHDRAWAL SYNDROME [None]
  - INFLUENZA LIKE ILLNESS [None]
  - PAIN OF SKIN [None]
  - CONVULSION [None]
  - PARAESTHESIA [None]
  - SUICIDAL IDEATION [None]
  - IRRITABILITY [None]
